FAERS Safety Report 20762234 (Version 1)
Quarter: 2022Q2

REPORT INFORMATION
  Report Type: Spontaneous
  Country: CN (occurrence: CN)
  Receive Date: 20220428
  Receipt Date: 20220428
  Transmission Date: 20220720
  Serious: Yes (Hospitalization)
  Sender: FDA-Public Use
  Company Number: CN-ELI_LILLY_AND_COMPANY-CN202204008782

PATIENT
  Age: 50 Year
  Sex: Female
  Weight: 70 kg

DRUGS (4)
  1. DULAGLUTIDE [Suspect]
     Active Substance: DULAGLUTIDE
     Indication: Diabetes mellitus
     Dosage: UNK UNK, WEEKLY (1/W)
     Route: 058
     Dates: start: 2021
  2. INSULIN DEGLUDEC AND INSULIN ASPART [Concomitant]
     Indication: Diabetes mellitus
     Dosage: 19 INTERNATIONAL UNIT, BID
     Route: 058
     Dates: start: 202204
  3. GLUCOPHAGE [Concomitant]
     Active Substance: METFORMIN HYDROCHLORIDE
     Indication: Diabetes mellitus
     Dosage: UNK UNK, DAILY
     Route: 048
  4. EPALRESTAT [Concomitant]
     Active Substance: EPALRESTAT
     Indication: Product used for unknown indication
     Route: 048

REACTIONS (1)
  - Blood glucose increased [Unknown]
